FAERS Safety Report 6932550-8 (Version None)
Quarter: 2010Q3

REPORT INFORMATION
  Report Type: 
  Country: None (occurrence: None)
  Receive Date: 20100817
  Receipt Date: 20100811
  Transmission Date: 20110219
  Serious: Yes (Death)
  Sender: FDA-Public Use
  Company Number: 2010MA001642

PATIENT
  Age: 53 Year
  Sex: Female

DRUGS (7)
  1. TRAMADOL HCL [Suspect]
     Dosage: 650 MG;TID;
  2. XYREM [Suspect]
     Indication: NARCOLEPSY
     Dosage: 500 MG/ML;HS;
  3. CARISOPRODOL [Suspect]
     Dosage: 350 MG;HS;
  4. GABAPENTIN [Concomitant]
  5. CETIRIZINE HCL [Concomitant]
  6. MODAFINIL [Concomitant]
  7. PREV MEDS =UNKNOWN [Concomitant]

REACTIONS (2)
  - MULTIPLE DRUG OVERDOSE ACCIDENTAL [None]
  - UNRESPONSIVE TO STIMULI [None]
